FAERS Safety Report 7130395-X (Version None)
Quarter: 2010Q4

REPORT INFORMATION
  Report Type: 
  Country: None (occurrence: None)
  Receive Date: 20101201
  Receipt Date: 20101119
  Transmission Date: 20110411
  Serious: Yes (Other)
  Sender: FDA-Public Use
  Company Number: PHHY2010JP75659

PATIENT

DRUGS (2)
  1. LOPRESSOR [Suspect]
     Route: 048
  2. NITROGLYCERIN [Concomitant]
     Route: 060

REACTIONS (1)
  - ANAPHYLACTIC SHOCK [None]
